FAERS Safety Report 13058131 (Version 1)
Quarter: 2016Q4

REPORT INFORMATION
  Report Type: Spontaneous
  Country: US (occurrence: US)
  Receive Date: 20161222
  Receipt Date: 20161222
  Transmission Date: 20170207
  Serious: Yes (Disabling, Other)
  Sender: FDA-Public Use
  Company Number: None

PATIENT
  Age: 35 Year
  Sex: Female
  Weight: 80.1 kg

DRUGS (1)
  1. MIDOL COMPLETE [Suspect]
     Active Substance: ACETAMINOPHEN\CAFFEINE\PYRILAMINE MALEATE
     Indication: DYSMENORRHOEA
     Dosage: ?          QUANTITY:1 CAPSULE(S);?
     Route: 048
     Dates: start: 20161219, end: 20161222

REACTIONS (7)
  - Chest discomfort [None]
  - Swelling face [None]
  - Eyelid oedema [None]
  - Urticaria [None]
  - Burning sensation [None]
  - Rash erythematous [None]
  - Hypoaesthesia oral [None]

NARRATIVE: CASE EVENT DATE: 20161219
